FAERS Safety Report 8421309-0 (Version None)
Quarter: 2012Q2

REPORT INFORMATION
  Report Type: 
  Country: None (occurrence: None)
  Receive Date: 20120601
  Receipt Date: 20120521
  Transmission Date: 20120825
  Serious: Yes (Other)
  Sender: FDA-Public Use
  Company Number: 1295348

PATIENT
  Age: 55 Year
  Sex: Female
  Weight: 73 kg

DRUGS (19)
  1. MORPHINE SULFATE [Suspect]
     Indication: ANAESTHESIA
     Dosage: 10 MG
     Route: 042
     Dates: start: 20120426
  2. PROPOFOL [Suspect]
     Indication: ANAESTHESIA
     Dosage: 120 MG
     Route: 042
     Dates: start: 20120426
  3. (INVESTIGATIONAL DRUG) [Suspect]
     Indication: COMPLICATIONS OF TRANSPLANTED KIDNEY
     Dosage: 600 MH/KG, TOTAL DOSE,
     Route: 042
     Dates: start: 20120426, end: 20120426
  4. LISINOPRIL [Concomitant]
  5. (BICARBONATE) [Concomitant]
  6. MANNITOL [Concomitant]
  7. FENTANYL CITRATE [Suspect]
     Indication: ANAESTHESIA
     Dosage: 200 UG
     Route: 042
     Dates: start: 20120426
  8. DESFLURANE [Suspect]
     Indication: ANAESTHESIA
     Dosage: 1 DF
     Route: 055
     Dates: start: 20120426
  9. CEFAZOLIN [Concomitant]
  10. FUROSEMIDE [Concomitant]
  11. MIDAZOLAM [Suspect]
     Indication: ANAESTHESIA
     Dosage: 2 MG
     Route: 042
     Dates: start: 20120426
  12. MYCOPHENOLATE MOFETIL [Suspect]
     Indication: RENAL TRANSPLANT
     Dosage: 1000 MG, TOTAL DOSE,   , ORAL
     Route: 048
     Dates: start: 20120426, end: 20120426
  13. LIPITOR [Concomitant]
  14. HYDROCHLOROTHIAZIDE [Concomitant]
  15. VITAMIN D [Concomitant]
  16. (EPHEDRINE) [Suspect]
     Indication: ANAESTHESIA
     Dosage: 5 MG
     Route: 042
     Dates: start: 20120426
  17. METHYLPREDNISOLONE ACETATE [Concomitant]
  18. ONDANSETRON [Concomitant]
  19. ROCURONIUM BROMIDE [Suspect]
     Indication: ANAESTHESIA
     Dosage: 50 MG
     Route: 042
     Dates: start: 20120426

REACTIONS (9)
  - ENCEPHALOPATHY [None]
  - WITHDRAWAL SYNDROME [None]
  - POST PROCEDURAL COMPLICATION [None]
  - PYREXIA [None]
  - BLOOD CREATINE PHOSPHOKINASE INCREASED [None]
  - STATUS EPILEPTICUS [None]
  - RENAL TRANSPLANT [None]
  - BRADYCARDIA [None]
  - INTRACRANIAL PRESSURE INCREASED [None]
